FAERS Safety Report 4589557-8 (Version None)
Quarter: 2005Q1

REPORT INFORMATION
  Report Type: 
  Country: None (occurrence: None)
  Receive Date: 20050217
  Receipt Date: 20050209
  Transmission Date: 20050727
  Serious: Yes (Hospitalization)
  Sender: FDA-Public Use
  Company Number: URSO-2005-004

PATIENT
  Age: 79 Year
  Sex: Female

DRUGS (5)
  1. URSODIOL [Suspect]
     Dosage: 600 MG PO
     Route: 048
     Dates: start: 20050101, end: 20050119
  2. OMEPRAZOLE [Suspect]
     Indication: REFLUX OESOPHAGITIS
     Dosage: 20 MG PO
     Route: 048
     Dates: start: 20050101, end: 20050119
  3. ALLOPURINOL [Suspect]
     Indication: DIURETIC EFFECT
     Dosage: 100 MG PO
     Route: 048
     Dates: start: 20050101, end: 20050119
  4. AFEMA (FADROZOLE HYDROCHLORIDE HYDRATE) [Suspect]
     Indication: MENOPAUSAL SYMPTOMS
     Dosage: 2 MG PO
     Route: 048
     Dates: start: 20050101, end: 20050119
  5. LASIX [Concomitant]

REACTIONS (6)
  - BREAST CANCER FEMALE [None]
  - HAEMOLYTIC ANAEMIA [None]
  - HEPATIC CIRRHOSIS [None]
  - HEPATIC NEOPLASM MALIGNANT [None]
  - HEPATITIS NON-A NON-B [None]
  - HEPATOCELLULAR DAMAGE [None]
